FAERS Safety Report 8128692-4 (Version None)
Quarter: 2012Q1

REPORT INFORMATION
  Report Type: 
  Country: None (occurrence: None)
  Receive Date: 20120210
  Receipt Date: 20110914
  Transmission Date: 20120608
  Serious: No
  Sender: FDA-Public Use
  Company Number: US-BRISTOL-MYERS SQUIBB COMPANY-15463144

PATIENT
  Age: 27 Year
  Sex: Female

DRUGS (8)
  1. INSULIN [Concomitant]
     Dosage: INSULIN PUMP
  2. ORENCIA [Suspect]
     Dosage: MOST RECENT ON 08DEC2010.
     Route: 042
     Dates: start: 20091101
  3. SKELAXIN [Concomitant]
     Indication: PAIN
  4. LISINOPRIL [Concomitant]
  5. TRAMADOL HCL [Concomitant]
     Indication: PAIN
  6. VICODIN [Concomitant]
     Indication: PAIN
  7. LORAZEPAM [Concomitant]
     Indication: SLEEP DISORDER
  8. OXAPROZIN [Concomitant]

REACTIONS (2)
  - LIVE BIRTH [None]
  - PREGNANCY [None]
